FAERS Safety Report 8798460 (Version 2)
Quarter: 2013Q4

REPORT INFORMATION
  Report Type: Spontaneous
  Country: US (occurrence: US)
  Receive Date: 20120920
  Receipt Date: 20131120
  Transmission Date: 20140711
  Serious: Yes (Hospitalization, Other)
  Sender: FDA-Public Use
  Company Number: US-ROCHE-784931

PATIENT
  Age: 26 Year
  Sex: Male

DRUGS (3)
  1. ACCUTANE [Suspect]
     Indication: ACNE
     Route: 065
     Dates: start: 1991, end: 1992
  2. ACCUTANE [Suspect]
     Dosage: 10 MG - 20 MG
     Route: 048
     Dates: start: 20010802, end: 200110
  3. ACCUTANE [Suspect]
     Route: 065

REACTIONS (5)
  - Small intestinal obstruction [Unknown]
  - Peritonitis [Unknown]
  - Inflammatory bowel disease [Unknown]
  - Colitis ulcerative [Unknown]
  - Depression [Unknown]
